FAERS Safety Report 20391766 (Version 1)
Quarter: 2022Q1

REPORT INFORMATION
  Report Type: Spontaneous
  Country: US (occurrence: None)
  Receive Date: 20220128
  Receipt Date: 20220128
  Transmission Date: 20220423
  Serious: No
  Sender: FDA-Public Use
  Company Number: None

PATIENT
  Age: 52 Year
  Sex: Female
  Weight: 59.4 kg

DRUGS (1)
  1. EMGALITY [Suspect]
     Active Substance: GALCANEZUMAB-GNLM
     Indication: Migraine prophylaxis
     Dosage: OTHER FREQUENCY : MONTHLY;?
     Route: 030
     Dates: start: 20211101, end: 20220104

REACTIONS (5)
  - Erythema [None]
  - Swelling [None]
  - Pruritus [None]
  - Injection site reaction [None]
  - Pain [None]

NARRATIVE: CASE EVENT DATE: 20220104
